FAERS Safety Report 9801668 (Version 3)
Quarter: 2014Q1

REPORT INFORMATION
  Report Type: Report from Study
  Country: DE (occurrence: DE)
  Receive Date: 20140107
  Receipt Date: 20140326
  Transmission Date: 20141002
  Serious: Yes (Other)
  Sender: FDA-Public Use
  Company Number: DE-BAYER-2014-002568

PATIENT
  Age: 47 Year
  Sex: Female
  Weight: 49 kg

DRUGS (2)
  1. BETAFERON [Suspect]
     Indication: MULTIPLE SCLEROSIS
     Dosage: 1 ML, QOD
     Route: 058
     Dates: start: 201310, end: 20131223
  2. BETAFERON [Suspect]
     Indication: MULTIPLE SCLEROSIS

REACTIONS (4)
  - Asthma [None]
  - Injection site erythema [Recovering/Resolving]
  - Injection site hypertrophy [None]
  - Inappropriate schedule of drug administration [None]
